FAERS Safety Report 8318264-0 (Version None)
Quarter: 2012Q2

REPORT INFORMATION
  Report Type: 
  Country: None (occurrence: None)
  Receive Date: 20120427
  Receipt Date: 20120423
  Transmission Date: 20120825
  Serious: Yes (Other)
  Sender: FDA-Public Use
  Company Number: US-AMGEN-USASP2011059343

PATIENT
  Age: 43 Year
  Sex: Female
  Weight: 87.075 kg

DRUGS (3)
  1. PRISTIQ [Concomitant]
     Dosage: 100 MG, UNK
  2. CORTICOSTEROIDS [Concomitant]
     Indication: IDIOPATHIC THROMBOCYTOPENIC PURPURA
  3. NPLATE [Suspect]
     Indication: IDIOPATHIC THROMBOCYTOPENIC PURPURA
     Dosage: 1 MUG/KG, UNK
     Route: 058
     Dates: start: 20110506, end: 20111007

REACTIONS (7)
  - PAIN [None]
  - INCREASED TENDENCY TO BRUISE [None]
  - PLATELET COUNT INCREASED [None]
  - PLATELET COUNT DECREASED [None]
  - HEADACHE [None]
  - MOUTH HAEMORRHAGE [None]
  - FATIGUE [None]
